FAERS Safety Report 17596868 (Version 2)
Quarter: 2021Q4

REPORT INFORMATION
  Report Type: Spontaneous
  Country: SE (occurrence: SE)
  Receive Date: 20200330
  Receipt Date: 20211119
  Transmission Date: 20220303
  Serious: Yes (Death, Hospitalization, Other)
  Sender: FDA-Public Use
  Company Number: SE-BRISTOL-MYERS SQUIBB COMPANY-BMS-2020-014295

PATIENT
  Sex: Male

DRUGS (10)
  1. CLOPIDOGREL [Interacting]
     Active Substance: CLOPIDOGREL BISULFATE
     Indication: Anticoagulant therapy
     Dosage: UNK
     Route: 065
     Dates: start: 201806
  2. LOSARTAN [Suspect]
     Active Substance: LOSARTAN
     Indication: Blood pressure increased
     Dosage: UNK
     Route: 065
  3. ALLOPURINOL [Suspect]
     Active Substance: ALLOPURINOL
     Indication: Gout
     Dosage: UNK
     Route: 065
     Dates: start: 201804
  4. DOPAMINE [Suspect]
     Active Substance: DOPAMINE HYDROCHLORIDE
     Indication: Parkinsonism
     Dosage: UNK LOW DOSE
     Route: 065
     Dates: start: 2019
  5. ELIQUIS [Interacting]
     Active Substance: APIXABAN
     Indication: Product used for unknown indication
     Dosage: UNK
     Route: 065
  6. HUMALOG [Suspect]
     Active Substance: INSULIN LISPRO
     Indication: Diabetes mellitus
     Dosage: 2 DOSAGE FORM, ONCE A DAY
     Route: 065
  7. SERTRALINE HYDROCHLORIDE [Suspect]
     Active Substance: SERTRALINE HYDROCHLORIDE
     Indication: Fatigue
     Dosage: 25 MILLIGRAM, ONCE A DAY
     Route: 065
     Dates: start: 201804, end: 201807
  8. SIMVASTATIN [Interacting]
     Active Substance: SIMVASTATIN
     Indication: Blood cholesterol increased
     Dosage: UNK
     Route: 065
  9. SIMVASTATIN [Interacting]
     Active Substance: SIMVASTATIN
     Indication: Anticoagulant therapy
     Dosage: UNK
     Route: 065
     Dates: start: 201806
  10. ASPIRIN [Interacting]
     Active Substance: ASPIRIN
     Indication: Anticoagulant therapy
     Dosage: 75 MILLIGRAM, ONCE A DAY
     Route: 065
     Dates: start: 201804

REACTIONS (15)
  - Fall [Fatal]
  - Anal haemorrhage [Fatal]
  - Gait disturbance [Fatal]
  - Musculoskeletal stiffness [Fatal]
  - Peripheral coldness [Fatal]
  - Thrombosis [Fatal]
  - Hiccups [Fatal]
  - Fatigue [Fatal]
  - Drug interaction [Fatal]
  - Dementia [Fatal]
  - Diarrhoea [Fatal]
  - Blood glucose increased [Fatal]
  - Epistaxis [Fatal]
  - Death [Fatal]
  - Cardiac disorder [Fatal]

NARRATIVE: CASE EVENT DATE: 20180501
